FAERS Safety Report 8816902 (Version 1)
Quarter: 2012Q4

REPORT INFORMATION
  Report Type: Spontaneous
  Country: US (occurrence: None)
  Receive Date: 20121002
  Receipt Date: 20121002
  Transmission Date: 20130627
  Serious: Yes (Life-Threatening)
  Sender: FDA-Public Use
  Company Number: None

PATIENT
  Age: 75 Year
  Sex: Male
  Weight: 74.84 kg

DRUGS (1)
  1. ZETIA [Suspect]
     Indication: HYPERLIPAEMIA
     Dosage: QD po
     Route: 048
     Dates: start: 20110210, end: 20110310

REACTIONS (1)
  - Suicidal ideation [None]
